FAERS Safety Report 7200826-5 (Version None)
Quarter: 2010Q4

REPORT INFORMATION
  Report Type: 
  Country: None (occurrence: None)
  Receive Date: 20101228
  Receipt Date: 20101223
  Transmission Date: 20110411
  Serious: Yes (Death, Hospitalization)
  Sender: FDA-Public Use
  Company Number: GR-PFIZER INC-2010165674

PATIENT
  Age: 66 Year
  Sex: Male
  Weight: 79 kg

DRUGS (4)
  1. PIPERACILLIN AND TAZOBACTAM [Suspect]
     Indication: ABDOMINAL INFECTION
     Dosage: 4.5 G, 4X/DAY
     Route: 042
     Dates: start: 20100703, end: 20100705
  2. PANCORAN [Concomitant]
     Indication: CARDIAC FAILURE
     Dosage: 10 MG, 1X/DAY
     Route: 062
     Dates: start: 20100703, end: 20100705
  3. PANTOPRAZOLE [Concomitant]
     Indication: GASTRITIS PROPHYLAXIS
     Dosage: 40 MG, 1X/DAY
     Route: 042
     Dates: start: 20100611, end: 20100705
  4. INNOHEP [Concomitant]
     Indication: ANTICOAGULANT THERAPY
     Dosage: 0.35 MG, 1X/DAY
     Route: 058
     Dates: start: 20100610, end: 20100715

REACTIONS (1)
  - POST PROCEDURAL HAEMORRHAGE [None]
